FAERS Safety Report 4619485-0 (Version None)
Quarter: 2005Q1

REPORT INFORMATION
  Report Type: 
  Country: None (occurrence: None)
  Receive Date: 20050325
  Receipt Date: 20050315
  Transmission Date: 20050727
  Serious: Yes (Other)
  Sender: FDA-Public Use
  Company Number: JP-JNJFOC-20050201334

PATIENT
  Sex: Female

DRUGS (9)
  1. RISPERDAL [Suspect]
     Route: 049
  2. RISPERDAL [Suspect]
     Route: 049
  3. RISPERDAL [Suspect]
     Route: 049
  4. RISPERDAL [Suspect]
     Route: 049
  5. RISPERDAL [Suspect]
     Route: 049
  6. RISPERDAL [Suspect]
     Route: 049
  7. RISPERDAL [Suspect]
     Indication: SCHIZOPHRENIA
     Route: 049
  8. LORAZEPAM [Concomitant]
     Indication: ANXIETY
     Route: 049
  9. PROMETHAZINE HCL [Concomitant]

REACTIONS (3)
  - BLOOD PROLACTIN INCREASED [None]
  - MENSTRUAL DISORDER [None]
  - WHITE BLOOD CELL COUNT DECREASED [None]
